FAERS Safety Report 7003898-6 (Version None)
Quarter: 2010Q3

REPORT INFORMATION
  Report Type: 
  Country: None (occurrence: None)
  Receive Date: 20100920
  Receipt Date: 20091214
  Transmission Date: 20110219
  Serious: No
  Sender: FDA-Public Use
  Company Number: US-WYE-H12644909

PATIENT
  Sex: Female
  Weight: 81.72 kg

DRUGS (4)
  1. PRISTIQ [Suspect]
     Indication: DEPRESSION
     Dosage: UNSPECIFIED
     Dates: start: 20090915, end: 20091101
  2. PRISTIQ [Suspect]
     Dosage: TAPERED PRISTIQ BY CUTTING THE TABLET IN HALF AND TAKING EVERY OTHER DAY
     Dates: start: 20091101, end: 20091211
  3. IRON [Concomitant]
  4. BUPROPION HYDROCHLORIDE [Concomitant]

REACTIONS (3)
  - DIZZINESS [None]
  - DRUG WITHDRAWAL SYNDROME [None]
  - INTENTIONAL DRUG MISUSE [None]
